FAERS Safety Report 7316738-2 (Version None)
Quarter: 2011Q1

REPORT INFORMATION
  Report Type: 
  Country: None (occurrence: None)
  Receive Date: 20110226
  Receipt Date: 20100804
  Transmission Date: 20110831
  Serious: No
  Sender: FDA-Public Use
  Company Number: US-ALLERGAN-1010125US

PATIENT
  Age: 44 Year
  Sex: Female

DRUGS (1)
  1. BOTOX COSMETIC [Suspect]
     Indication: SKIN WRINKLING
     Dosage: UNK
     Route: 030
     Dates: start: 20100301, end: 20100301

REACTIONS (4)
  - SEBORRHOEA [None]
  - RASH PAPULAR [None]
  - INJECTION SITE RASH [None]
  - INJECTION SITE HAEMATOMA [None]
